FAERS Safety Report 6695442-8 (Version None)
Quarter: 2010Q2

REPORT INFORMATION
  Report Type: 
  Country: None (occurrence: None)
  Receive Date: 20100422
  Receipt Date: 20100422
  Transmission Date: 20101027
  Serious: Yes (Hospitalization, Other)
  Sender: FDA-Public Use
  Company Number: None

PATIENT
  Sex: Male
  Weight: 80.7403 kg

DRUGS (1)
  1. PRIALT [Suspect]
     Dosage: BY THECAL PUMP
     Route: 037
     Dates: start: 20090501, end: 20100301

REACTIONS (2)
  - AMNESIA [None]
  - PSYCHOTIC BEHAVIOUR [None]
